FAERS Safety Report 25684253 (Version 1)
Quarter: 2025Q3

REPORT INFORMATION
  Report Type: Spontaneous
  Country: EU (occurrence: EU)
  Receive Date: 20250815
  Receipt Date: 20250815
  Transmission Date: 20251020
  Serious: Yes (Hospitalization, Other)
  Sender: CELLTRION
  Company Number: None

PATIENT

DRUGS (2)
  1. YUFLYMA [Suspect]
     Active Substance: ADALIMUMAB-AATY
     Indication: Hidradenitis
     Dates: start: 20221209, end: 20250210
  2. YUFLYMA [Suspect]
     Active Substance: ADALIMUMAB-AATY

REACTIONS (2)
  - Visual field defect [Unknown]
  - Optic neuritis [Unknown]

NARRATIVE: CASE EVENT DATE: 20250211
